FAERS Safety Report 13648984 (Version 5)
Quarter: 2018Q2

REPORT INFORMATION
  Report Type: Spontaneous
  Country: US (occurrence: US)
  Receive Date: 20170613
  Receipt Date: 20180606
  Transmission Date: 20180711
  Serious: No
  Sender: FDA-Public Use
  Company Number: US-ACTELION-A-US2017-155138

PATIENT
  Age: 38 Year
  Sex: Female
  Weight: 73.16 kg

DRUGS (8)
  1. VELETRI [Suspect]
     Active Substance: EPOPROSTENOL
     Indication: PULMONARY ARTERIAL HYPERTENSION
     Dosage: 40 NG/KG, PER MIN
     Route: 042
  2. LASIX [Concomitant]
     Active Substance: FUROSEMIDE
     Dosage: UNK
  3. PHENERGAN [Concomitant]
     Active Substance: PROMETHAZINE HYDROCHLORIDE
     Dosage: UNK
  4. SILDENAFIL. [Concomitant]
     Active Substance: SILDENAFIL
  5. ADCIRCA [Concomitant]
     Active Substance: TADALAFIL
     Dosage: UNK
  6. VELETRI [Suspect]
     Active Substance: EPOPROSTENOL
     Dosage: 40 NG/KG, PER MIN
     Route: 042
  7. XANAX [Concomitant]
     Active Substance: ALPRAZOLAM
     Dosage: UNK
  8. IMODIUM A-D [Concomitant]
     Active Substance: LOPERAMIDE HYDROCHLORIDE
     Dosage: UNK

REACTIONS (15)
  - Musculoskeletal discomfort [Unknown]
  - Catheter site infection [Recovering/Resolving]
  - Flushing [Not Recovered/Not Resolved]
  - Diarrhoea [Unknown]
  - Catheter site erythema [Recovering/Resolving]
  - Musculoskeletal stiffness [Recovered/Resolved]
  - Rhinalgia [Not Recovered/Not Resolved]
  - Device dislocation [Unknown]
  - Dyspnoea [Unknown]
  - Culture wound positive [Unknown]
  - Catheter management [Recovering/Resolving]
  - Device related infection [Unknown]
  - White blood cell count increased [Recovering/Resolving]
  - Catheter site discharge [Recovering/Resolving]
  - Pain in jaw [Not Recovered/Not Resolved]

NARRATIVE: CASE EVENT DATE: 20170531
